FAERS Safety Report 16546416 (Version 1)
Quarter: 2019Q3

REPORT INFORMATION
  Report Type: Spontaneous
  Country: US (occurrence: US)
  Receive Date: 20190528
  Receipt Date: 20190528
  Transmission Date: 20191004
  Serious: Yes (Hospitalization)
  Sender: FDA-Public Use
  Company Number: None

PATIENT
  Sex: Female

DRUGS (2)
  1. VIGABATRIN POWDER [Suspect]
     Active Substance: VIGABATRIN
     Indication: EPILEPSY
     Route: 048
     Dates: start: 2015
  2. VIGABATRIN POWDER [Suspect]
     Active Substance: VIGABATRIN
     Indication: MUSCLE SPASMS
     Route: 048
     Dates: start: 2015

REACTIONS (1)
  - Hospitalisation [None]
